FAERS Safety Report 11167761 (Version 1)
Quarter: 2015Q2

REPORT INFORMATION
  Report Type: Spontaneous
  Country: US (occurrence: US)
  Receive Date: 20150605
  Receipt Date: 20150605
  Transmission Date: 20150821
  Serious: No
  Sender: FDA-Public Use
  Company Number: US-PFIZER INC-2015185279

PATIENT
  Sex: Female

DRUGS (8)
  1. CLONAZEPAM. [Suspect]
     Active Substance: CLONAZEPAM
     Dosage: 1 MG, 2X/DAY
  2. HUMIRA [Suspect]
     Active Substance: ADALIMUMAB
     Dosage: 40 MG, UNK(1 PEN EVERY 2 WEEKS )
  3. SOLVIN (BROMHEXINE HYDROCHLORIDE) [Suspect]
     Active Substance: BROMHEXINE HYDROCHLORIDE
     Dosage: 2.5 MG, 1X/DAY
  4. AZELASTINE [Suspect]
     Active Substance: AZELASTINE
     Dosage: 1 DF, 2X/DAY
     Route: 047
  5. TUBERCULIN NOS [Suspect]
     Active Substance: TUBERCULIN PURIFIED PROTEIN DERIVATIVE
     Dosage: 1 MG, UNK
  6. LYRICA [Suspect]
     Active Substance: PREGABALIN
     Dosage: 150 MG, 2X/DAY
  7. CYCLOBENZAPRINE [Suspect]
     Active Substance: CYCLOBENZAPRINE
     Dosage: 10 MG, 1X/DAY
  8. METHOTREXATE [Suspect]
     Active Substance: METHOTREXATE
     Dosage: 25 MG, WEEKLY

REACTIONS (8)
  - Asthma [Unknown]
  - Depression [Unknown]
  - Gastric disorder [Unknown]
  - Gastrooesophageal reflux disease [Unknown]
  - Rhinitis [Unknown]
  - Hypersensitivity [Unknown]
  - Sleep disorder [Unknown]
  - Ear infection [Unknown]
